FAERS Safety Report 4784066-5 (Version None)
Quarter: 2005Q3

REPORT INFORMATION
  Report Type: 
  Country: None (occurrence: None)
  Receive Date: 20050930
  Receipt Date: 20050914
  Transmission Date: 20060218
  Serious: Yes (Other)
  Sender: FDA-Public Use
  Company Number: PHBS2005SE13483

PATIENT

DRUGS (1)
  1. VOLTAREN [Suspect]
     Indication: HEREDITARY DISORDER

REACTIONS (1)
  - NEUROPATHY [None]
